FAERS Safety Report 18683274 (Version 1)
Quarter: 2020Q4

REPORT INFORMATION
  Report Type: Spontaneous
  Country: US (occurrence: US)
  Receive Date: 20201230
  Receipt Date: 20201230
  Transmission Date: 20210114
  Serious: Yes (Death, Other)
  Sender: FDA-Public Use
  Company Number: US-FRESENIUS KABI-FK202014079

PATIENT
  Age: 42 Year
  Sex: Male

DRUGS (2)
  1. CYTARABINE (MANUFACTURER UNKNOWN) [Suspect]
     Active Substance: CYTARABINE
     Dosage: EVERY 2 WEEKS IN AFTER COMPLETION OF 4 CYCLES
     Route: 042
     Dates: start: 201709
  2. CYTARABINE (MANUFACTURER UNKNOWN) [Suspect]
     Active Substance: CYTARABINE
     Indication: LANGERHANS CELL SARCOMA
     Dosage: DAILY FOR 5 DAYS, EVERY 4 WEEKS
     Route: 042
     Dates: start: 201705

REACTIONS (1)
  - Myelodysplastic syndrome [Unknown]

NARRATIVE: CASE EVENT DATE: 201710
